FAERS Safety Report 4360414-5 (Version None)
Quarter: 2004Q2

REPORT INFORMATION
  Report Type: 
  Country: None (occurrence: None)
  Receive Date: 20040517
  Receipt Date: 20021113
  Transmission Date: 20050107
  Serious: Yes (Other)
  Sender: FDA-Public Use
  Company Number: C02-C-007

PATIENT
  Age: 50 Year
  Sex: Female

DRUGS (1)
  1. PHENTERMINE [Suspect]
     Indication: OBESITY
     Dosage: ORAL
     Route: 048
     Dates: start: 20040501, end: 20040507

REACTIONS (1)
  - TRANSIENT ISCHAEMIC ATTACK [None]
